FAERS Safety Report 4557701-4 (Version None)
Quarter: 2005Q1

REPORT INFORMATION
  Report Type: 
  Country: None (occurrence: None)
  Receive Date: 20050118
  Receipt Date: 20050105
  Transmission Date: 20050727
  Serious: Yes (Life-Threatening, Disabling)
  Sender: FDA-Public Use
  Company Number: HQWYE395205JAN05

PATIENT
  Age: 37 Year
  Sex: Male

DRUGS (3)
  1. PANTOZOL (PANTOPRAZOLE, TABLET, DELAYED RELEASE) [Suspect]
     Indication: GASTROENTERITIS HELICOBACTER
     Dosage: 40 MG 2X PER 1 DAY
     Route: 048
  2. AMOXICILLIN [Suspect]
     Indication: GASTROENTERITIS HELICOBACTER
     Dosage: 1000 MG 2X PER 1 DAY
     Route: 048
  3. CLARITHROMYCIN [Suspect]
     Indication: GASTROENTERITIS HELICOBACTER
     Route: 048

REACTIONS (2)
  - CEREBRAL DISORDER [None]
  - LONG QT SYNDROME CONGENITAL [None]
